FAERS Safety Report 10201927 (Version 3)
Quarter: 2014Q2

REPORT INFORMATION
  Report Type: Spontaneous
  Country: BR (occurrence: BR)
  Receive Date: 20140528
  Receipt Date: 20140617
  Transmission Date: 20141212
  Serious: Yes (Hospitalization, Other)
  Sender: FDA-Public Use
  Company Number: BR-VERTEX PHARMACEUTICALS INC-2014-001896

PATIENT
  Age: 55 Year
  Sex: Male
  Weight: 63.2 kg

DRUGS (9)
  1. INCIVO [Suspect]
     Indication: HEPATITIS C
     Route: 048
     Dates: start: 20140320
  2. INTERFERON [Concomitant]
     Indication: HEPATITIS C
     Dosage: UNK, QW
     Route: 065
     Dates: start: 20140320
  3. RIBAVIRINE [Concomitant]
     Indication: HEPATITIS C
     Dosage: UNK
     Route: 065
     Dates: start: 20140320
  4. CAPTOPRIL [Concomitant]
     Indication: HYPERTENSION
     Dosage: UNK
     Route: 065
  5. CAPTOPRIL [Concomitant]
     Dosage: UNK
  6. SELOZOK [Concomitant]
     Indication: HYPERTENSION
     Dosage: UNK
     Route: 065
  7. SELOZOK [Concomitant]
     Dosage: UNK
  8. AMLODIPINE BESYLATE [Concomitant]
     Indication: HYPERTENSION
     Dosage: UNK
     Route: 065
  9. AMLODIPINE BESYLATE [Concomitant]
     Dosage: UNK

REACTIONS (8)
  - Respiratory failure [Recovered/Resolved]
  - Hypotension [Recovered/Resolved]
  - Pneumonia [Recovered/Resolved]
  - Renal failure [Recovered/Resolved]
  - Platelet count decreased [Not Recovered/Not Resolved]
  - Weight decreased [Not Recovered/Not Resolved]
  - Decreased appetite [Not Recovered/Not Resolved]
  - Arthralgia [Not Recovered/Not Resolved]
